FAERS Safety Report 21194306 (Version 1)
Quarter: 2022Q3

REPORT INFORMATION
  Report Type: Spontaneous
  Country: US (occurrence: None)
  Receive Date: 20220809
  Receipt Date: 20220809
  Transmission Date: 20221027
  Serious: Yes (Life-Threatening)
  Sender: FDA-Public Use
  Company Number: None

PATIENT
  Age: 36 Year
  Sex: Female
  Weight: 71.1 kg

DRUGS (2)
  1. XOLAIR [Suspect]
     Active Substance: OMALIZUMAB
     Indication: Chronic spontaneous urticaria
     Dosage: OTHER FREQUENCY : Q 4 WEEKS;?
     Route: 058
     Dates: start: 20220726, end: 20220726
  2. XOLAIR [Concomitant]
     Active Substance: OMALIZUMAB
     Dates: start: 20220726, end: 20220726

REACTIONS (4)
  - Pruritus [None]
  - Anaphylactic reaction [None]
  - Angioedema [None]
  - Wheezing [None]

NARRATIVE: CASE EVENT DATE: 20220726
